FAERS Safety Report 22240835 (Version 1)
Quarter: 2023Q2

REPORT INFORMATION
  Report Type: Spontaneous
  Country: FR (occurrence: FR)
  Receive Date: 20230421
  Receipt Date: 20230421
  Transmission Date: 20230721
  Serious: Yes (Hospitalization)
  Sender: FDA-Public Use
  Company Number: None

PATIENT
  Age: 67 Year
  Sex: Female
  Weight: 38.5 kg

DRUGS (5)
  1. OXALIPLATIN [Suspect]
     Active Substance: OXALIPLATIN
     Indication: Colon cancer
     Dosage: 115 MG?INTRAVENOUS USE
     Dates: start: 20190809
  2. LEVOLEUCOVORIN CALCIUM [Suspect]
     Active Substance: LEVOLEUCOVORIN CALCIUM
     Indication: Colon cancer
     Dosage: 260 MG?INTRAVENOUS
     Dates: start: 20190809
  3. FLUOROURACIL [Suspect]
     Active Substance: FLUOROURACIL
     Indication: Colon cancer
     Dosage: 3750 MG?INTRAVENOUS
     Dates: start: 20190809
  4. HALDOL [Concomitant]
     Active Substance: HALOPERIDOL
     Indication: Product used for unknown indication
  5. CITALOPRAM HYDROBROMIDE [Concomitant]
     Active Substance: CITALOPRAM HYDROBROMIDE
     Indication: Product used for unknown indication

REACTIONS (4)
  - Hypokalaemia [None]
  - Hyponatraemia [None]
  - Acute kidney injury [Recovered/Resolved with Sequelae]
  - Sepsis [Recovered/Resolved with Sequelae]

NARRATIVE: CASE EVENT DATE: 20190822
